FAERS Safety Report 8797645 (Version 2)
Quarter: 2012Q4

REPORT INFORMATION
  Report Type: 
  Country: US (occurrence: US)
  Receive Date: 20120920
  Receipt Date: 20121210
  Transmission Date: 20130627
  Serious: No
  Sender: FDA-Public Use
  Company Number: US-009507513-1209USA006054

PATIENT
  Age: 19 Year
  Sex: Female

DRUGS (2)
  1. NEXPLANON [Suspect]
     Dosage: 1 DF, UNK
     Route: 058
     Dates: start: 20120912
  2. NEXPLANON [Suspect]
     Dosage: 1 UNK, UNK
     Route: 058
     Dates: start: 20120912

REACTIONS (3)
  - Device deployment issue [Unknown]
  - No adverse event [Unknown]
  - Device expulsion [Unknown]
